FAERS Safety Report 24234117 (Version 1)
Quarter: 2024Q3

REPORT INFORMATION
  Report Type: Spontaneous
  Country: US (occurrence: None)
  Receive Date: 20240820
  Receipt Date: 20240820
  Transmission Date: 20241017
  Serious: Yes (Other)
  Sender: Public
  Company Number: None

PATIENT
  Age: 42 Year
  Sex: Male

DRUGS (1)
  1. OPZELURA [Suspect]
     Active Substance: RUXOLITINIB PHOSPHATE
     Indication: Dermatitis atopic
     Dosage: FREQUENCY : DAILY;?
     Route: 061
     Dates: start: 20240801

REACTIONS (2)
  - Herpes zoster [None]
  - Rash [None]

NARRATIVE: CASE EVENT DATE: 20240820
